FAERS Safety Report 14061503 (Version 5)
Quarter: 2018Q2

REPORT INFORMATION
  Report Type: Report from Study
  Country: None (occurrence: US)
  Receive Date: 20171009
  Receipt Date: 20180612
  Transmission Date: 20180711
  Serious: Yes (Other)
  Sender: FDA-Public Use
  Company Number: US-ABBVIE-17K-163-1980636-00

PATIENT
  Sex: Female

DRUGS (1)
  1. HUMIRA [Suspect]
     Active Substance: ADALIMUMAB
     Indication: CROHN^S DISEASE
     Route: 058

REACTIONS (5)
  - Fatigue [Unknown]
  - Mobility decreased [Not Recovered/Not Resolved]
  - Back pain [Unknown]
  - Malaise [Recovering/Resolving]
  - Neoplasm malignant [Recovering/Resolving]
